FAERS Safety Report 23738351 (Version 2)
Quarter: 2024Q2

REPORT INFORMATION
  Report Type: Spontaneous
  Country: US (occurrence: US)
  Receive Date: 20240412
  Receipt Date: 20240606
  Transmission Date: 20240716
  Serious: No
  Sender: FDA-Public Use
  Company Number: US-KARYOPHARM-2024KPT000858

PATIENT

DRUGS (7)
  1. XPOVIO [Suspect]
     Active Substance: SELINEXOR
     Indication: Plasma cell myeloma
     Dosage: 40 MG, WEEKLY
     Route: 048
     Dates: start: 20230828
  2. XPOVIO [Suspect]
     Active Substance: SELINEXOR
     Dosage: 40 MG, WEEKLY
     Route: 048
     Dates: start: 2024
  3. FLAREX [Concomitant]
     Active Substance: FLUOROMETHOLONE ACETATE
  4. CINVANTI [Concomitant]
     Active Substance: APREPITANT
  5. PROCHLORPERAZINE [Concomitant]
     Active Substance: PROCHLORPERAZINE
  6. ZYPREXA [Concomitant]
     Active Substance: OLANZAPINE
  7. EMEND [Concomitant]
     Active Substance: APREPITANT

REACTIONS (2)
  - Gastroenteritis viral [Unknown]
  - Intentional dose omission [Unknown]

NARRATIVE: CASE EVENT DATE: 20240101
